FAERS Safety Report 8107884-4 (Version None)
Quarter: 2011Q4

REPORT INFORMATION
  Report Type: 
  Country: None (occurrence: None)
  Receive Date: 20111227
  Receipt Date: 20111108
  Transmission Date: 20120403
  Serious: No
  Sender: FDA-Public Use
  Company Number: PHEH2011US04884

PATIENT
  Age: 59 Year
  Sex: Female
  Weight: 57.6 kg

DRUGS (4)
  1. CALTRATE (CALCIUM CARBONATE) [Concomitant]
  2. DITROPAN [Concomitant]
  3. TYLENOL PM, EXTRA STRENGTH (DIPHENHYDRAMINE, PARACETAMOL) [Concomitant]
  4. GILENYA [Suspect]
     Indication: MULTIPLE SCLEROSIS
     Dosage: 0.5 MG, QD, ORAL
     Route: 048
     Dates: start: 20110905

REACTIONS (5)
  - ASTHENIA [None]
  - FEELING ABNORMAL [None]
  - DIZZINESS [None]
  - COORDINATION ABNORMAL [None]
  - FATIGUE [None]
